FAERS Safety Report 5574256-6 (Version None)
Quarter: 2007Q4

REPORT INFORMATION
  Report Type: 
  Country: None (occurrence: None)
  Receive Date: 20071221
  Receipt Date: 20071211
  Transmission Date: 20080405
  Serious: Yes (Other)
  Sender: FDA-Public Use
  Company Number: TPA2007A02166

PATIENT
  Age: 61 Year
  Sex: Female
  Weight: 50.8029 kg

DRUGS (4)
  1. ROZEREM [Suspect]
     Indication: INSOMNIA
     Dosage: PER ORAL
     Route: 048
  2. SONATA [Suspect]
  3. BENZODIAZEPINE (BENZODIAPZEPINE DERIVATIVES) [Suspect]
  4. LUNESTA [Suspect]

REACTIONS (3)
  - DRUG INEFFECTIVE [None]
  - SOMNAMBULISM [None]
  - WOUND [None]
